FAERS Safety Report 9749253 (Version 1)
Quarter: 2013Q4

REPORT INFORMATION
  Report Type: Spontaneous
  Country: US (occurrence: US)
  Receive Date: 20131212
  Receipt Date: 20131212
  Transmission Date: 20140711
  Serious: No
  Sender: FDA-Public Use
  Company Number: US-INCYTE CORPORATION-2013IN002723

PATIENT
  Age: 76 Year
  Sex: Female

DRUGS (1)
  1. JAKAFI [Suspect]
     Indication: MYCOBACTERIAL INFECTION
     Dosage: 15 MG, BID
     Route: 048
     Dates: start: 20111222

REACTIONS (1)
  - Pruritus generalised [Unknown]
